FAERS Safety Report 5146659-5 (Version None)
Quarter: 2006Q4

REPORT INFORMATION
  Report Type: 
  Country: None (occurrence: None)
  Receive Date: 20061107
  Receipt Date: 20061107
  Transmission Date: 20070319
  Serious: Yes (Hospitalization)
  Sender: FDA-Public Use
  Company Number: None

PATIENT
  Age: 84 Year
  Sex: Female
  Weight: 65 kg

DRUGS (8)
  1. INVANZ [Suspect]
     Indication: LITHOTRIPSY
     Dosage: 1GM Q24H IVPB
     Route: 042
     Dates: start: 20060817
  2. INVANZ [Suspect]
     Indication: POSTOPERATIVE CARE
     Dosage: 1GM Q24H IVPB
     Route: 042
     Dates: start: 20060817
  3. INVANZ [Suspect]
     Indication: LITHOTRIPSY
     Dosage: 1GM Q24H IVPB
     Route: 042
     Dates: start: 20060818
  4. INVANZ [Suspect]
     Indication: POSTOPERATIVE CARE
     Dosage: 1GM Q24H IVPB
     Route: 042
     Dates: start: 20060818
  5. INVANZ [Suspect]
     Indication: LITHOTRIPSY
     Dosage: 1GM Q24H IVPB
     Route: 042
     Dates: start: 20060819
  6. INVANZ [Suspect]
     Indication: POSTOPERATIVE CARE
     Dosage: 1GM Q24H IVPB
     Route: 042
     Dates: start: 20060819
  7. INVANZ [Suspect]
     Indication: LITHOTRIPSY
     Dosage: 1GM Q24H IVPB
     Route: 042
     Dates: start: 20060820
  8. INVANZ [Suspect]
     Indication: POSTOPERATIVE CARE
     Dosage: 1GM Q24H IVPB
     Route: 042
     Dates: start: 20060820

REACTIONS (3)
  - CREATININE RENAL CLEARANCE INCREASED [None]
  - DRUG INTERACTION [None]
  - GRAND MAL CONVULSION [None]
